FAERS Safety Report 9702573 (Version 3)
Quarter: 2013Q4

REPORT INFORMATION
  Report Type: Spontaneous
  Country: US (occurrence: US)
  Receive Date: 20131121
  Receipt Date: 20131206
  Transmission Date: 20140711
  Serious: Yes (Hospitalization, Other)
  Sender: FDA-Public Use
  Company Number: US-CUBIST PHARMACEUTICAL, INC.-2013CBST001165

PATIENT
  Sex: 0

DRUGS (12)
  1. CUBICIN [Suspect]
     Indication: OSTEOMYELITIS
     Dosage: 6.08 MG/KG, QD
     Route: 042
     Dates: start: 20131014, end: 20131026
  2. CUBICIN [Suspect]
     Indication: OFF LABEL USE
     Dosage: 700 MG, QD
     Route: 042
     Dates: start: 20131014, end: 20131026
  3. AZTREONAM [Concomitant]
     Indication: PRODUCT USED FOR UNKNOWN INDICATION
     Dosage: UNK UNK, UNK
     Route: 065
     Dates: start: 20131014
  4. CEFEPIME [Concomitant]
     Indication: OSTEOMYELITIS
     Dosage: UNK UNK, UNK
     Route: 065
     Dates: start: 20130929
  5. CEFEPIME [Concomitant]
     Dosage: 2 G, Q12H
     Route: 065
     Dates: start: 20131026
  6. FLAGYL                             /00012501/ [Concomitant]
     Indication: OSTEOMYELITIS
     Dosage: UNK UNK, UNK
     Route: 065
     Dates: start: 20130929
  7. LISINOPRIL [Concomitant]
     Indication: HYPERTENSION
     Dosage: UNK UNK, UNK
     Route: 065
  8. BETA-BLOCKER [Concomitant]
     Indication: HYPERTENSION
     Dosage: UNK UNK, UNK
     Route: 065
  9. INSULIN [Concomitant]
     Indication: TYPE 2 DIABETES MELLITUS
     Dosage: UNK UNK, UNK
     Route: 065
  10. MIDAZOLAM [Concomitant]
     Indication: SEDATION
     Dosage: UNK UNK, UNK
     Route: 065
  11. OMEPRAZOLE [Concomitant]
     Indication: PROPHYLAXIS AGAINST GASTROINTESTINAL ULCER
     Dosage: UNK UNK, UNK
     Route: 065
  12. OPIOIDS [Concomitant]
     Indication: ARTHRALGIA

REACTIONS (11)
  - Respiratory distress [Recovering/Resolving]
  - Somnolence [Unknown]
  - Hypoxia [Unknown]
  - Pyrexia [Unknown]
  - Acute interstitial pneumonitis [Recovering/Resolving]
  - Pneumonitis chemical [Recovered/Resolved]
  - Organising pneumonia [Recovered/Resolved]
  - Clostridium difficile infection [Unknown]
  - Joint swelling [Unknown]
  - Arthralgia [Unknown]
  - Blood creatine phosphokinase increased [Unknown]
